FAERS Safety Report 18904116 (Version 1)
Quarter: 2021Q1

REPORT INFORMATION
  Report Type: Spontaneous
  Country: US (occurrence: US)
  Receive Date: 20210217
  Receipt Date: 20210217
  Transmission Date: 20210420
  Serious: No
  Sender: FDA-Public Use
  Company Number: US-DRREDDYS-USA/USA/21/0131644

PATIENT
  Age: 58 Year
  Sex: Female
  Weight: 71.1 kg

DRUGS (2)
  1. HABITROL [Suspect]
     Active Substance: NICOTINE
     Indication: TOBACCO USER
     Dosage: APPLIED THE PATCH TO THE?UPPER ARM
     Route: 062
     Dates: start: 202101
  2. HABITROL [Suspect]
     Active Substance: NICOTINE
     Route: 062

REACTIONS (4)
  - Therapy interrupted [Unknown]
  - Incorrect dose administered [Unknown]
  - Product quality issue [Unknown]
  - Drug ineffective [Unknown]
